FAERS Safety Report 17468670 (Version 2)
Quarter: 2020Q1

REPORT INFORMATION
  Report Type: Spontaneous
  Country: CN (occurrence: CN)
  Receive Date: 20200227
  Receipt Date: 20200312
  Transmission Date: 20200409
  Serious: Yes (Death, Hospitalization, Other)
  Sender: FDA-Public Use
  Company Number: CN-SA-2020SA047030

PATIENT
  Age: 40 Year
  Sex: Female

DRUGS (3)
  1. OXALIPLATIN. [Suspect]
     Active Substance: OXALIPLATIN
     Indication: ANGIOCENTRIC LYMPHOMA
     Dosage: ON DAY 1
     Route: 041
     Dates: start: 20141212, end: 201412
  2. GEMCITABINE HYDROCHLORIDE. [Suspect]
     Active Substance: GEMCITABINE HYDROCHLORIDE
     Indication: ANGIOCENTRIC LYMPHOMA
     Dosage: ON DAY 1 AND DAY 8
     Route: 041
     Dates: start: 20141212, end: 201412
  3. PEGASPARGASE [Suspect]
     Active Substance: PEGASPARGASE
     Indication: ANGIOCENTRIC LYMPHOMA
     Dosage: ON DAY 1 INJECTION
     Route: 030
     Dates: start: 20141212, end: 201412

REACTIONS (2)
  - Blood fibrinogen decreased [Unknown]
  - Anaemia [Unknown]

NARRATIVE: CASE EVENT DATE: 201412
